FAERS Safety Report 12179908 (Version 1)
Quarter: 2016Q1

REPORT INFORMATION
  Report Type: Spontaneous
  Country: CA (occurrence: CA)
  Receive Date: 20160315
  Receipt Date: 20160315
  Transmission Date: 20160526
  Serious: Yes (Hospitalization)
  Sender: FDA-Public Use
  Company Number: CA-009507513-1603CAN005343

PATIENT
  Sex: Female

DRUGS (2)
  1. POSANOL [Suspect]
     Active Substance: POSACONAZOLE
     Indication: HISTOPLASMOSIS
     Dosage: 300 MG, DAILY, TABLET OR ORAL SOLUTION
     Route: 048
     Dates: start: 201512, end: 2016
  2. POSANOL [Suspect]
     Active Substance: POSACONAZOLE
     Dosage: 300 MG, DAILY, TABLET OR ORAL SOLUTION
     Dates: start: 2016

REACTIONS (2)
  - Drug dose omission [Unknown]
  - Crohn^s disease [Unknown]

NARRATIVE: CASE EVENT DATE: 2016
